FAERS Safety Report 9452137 (Version 1)
Quarter: 2013Q3

REPORT INFORMATION
  Report Type: Spontaneous
  Country: US (occurrence: US)
  Receive Date: 20130812
  Receipt Date: 20130812
  Transmission Date: 20140515
  Serious: No
  Sender: FDA-Public Use
  Company Number: US-BIOGENIDEC-2013BI073760

PATIENT
  Age: 35 Year
  Sex: Female

DRUGS (1)
  1. TYSABRI [Suspect]
     Indication: MULTIPLE SCLEROSIS
     Route: 042
     Dates: start: 20100625

REACTIONS (17)
  - Stress [Recovered/Resolved]
  - Paraesthesia [Recovered/Resolved]
  - Exaggerated startle response [Recovered/Resolved]
  - Coordination abnormal [Recovered/Resolved]
  - Vitamin B12 decreased [Recovered/Resolved]
  - Blood iron decreased [Recovered/Resolved]
  - Vitamin D decreased [Unknown]
  - Depression [Recovered/Resolved]
  - Facial pain [Recovered/Resolved]
  - Toothache [Recovered/Resolved]
  - Swelling face [Recovered/Resolved]
  - Pain [Recovered/Resolved]
  - Gingival pain [Recovered/Resolved]
  - Hyperaesthesia [Unknown]
  - Oral herpes [Recovered/Resolved]
  - Infection [Unknown]
  - Pyrexia [Recovered/Resolved]
